FAERS Safety Report 8189197-8 (Version None)
Quarter: 2012Q1

REPORT INFORMATION
  Report Type: 
  Country: None (occurrence: None)
  Receive Date: 20120306
  Receipt Date: 20120306
  Transmission Date: 20120608
  Serious: Yes (Hospitalization)
  Sender: FDA-Public Use
  Company Number: None

PATIENT
  Age: 88 Year
  Sex: Female

DRUGS (5)
  1. TRAVOPROST [Concomitant]
  2. LORAMYC 50MG BUCCAL TABLET (MICONAZOLE) [Suspect]
     Indication: ORAL CANDIDIASIS
     Dosage: 50 MG MILLIGRAM (S) X
     Dates: start: 20100401, end: 20100401
  3. TIMOLOL MALEATE [Concomitant]
  4. LEVOTHYROXINE SODIUM [Concomitant]
  5. SEROPLEX (ESCITALOPRAM OXALATE) : FROM NOT [Suspect]
     Indication: ORAL CANDIDIASIS
     Dosage: 5 MG MILLIGRAM (S) X 1 1 PER DAYS BUCCAL
     Route: 002
     Dates: start: 20100401, end: 20100401

REACTIONS (11)
  - SOMNOLENCE [None]
  - HYPERREFLEXIA [None]
  - HYPONATRAEMIA [None]
  - TACHYCARDIA [None]
  - HYPERTONIA [None]
  - OVERDOSE [None]
  - SEROTONIN SYNDROME [None]
  - DRUG INTERACTION [None]
  - CONFUSIONAL STATE [None]
  - TREMOR [None]
  - HYPERTENSION [None]
